FAERS Safety Report 4772052-0 (Version None)
Quarter: 2005Q3

REPORT INFORMATION
  Report Type: 
  Country: None (occurrence: None)
  Receive Date: 20050916
  Receipt Date: 20050714
  Transmission Date: 20060218
  Serious: Yes (Hospitalization)
  Sender: FDA-Public Use
  Company Number: US-ABBOTT-05P-163-0305795-00

PATIENT
  Sex: Male
  Weight: 74.91 kg

DRUGS (3)
  1. TRICOR [Suspect]
     Indication: HYPERLIPIDAEMIA
     Route: 048
     Dates: start: 20050520, end: 20050627
  2. MOXIFLOXACIN HYDROCHLORIDE [Concomitant]
     Indication: DRUG USE FOR UNKNOWN INDICATION
     Dates: start: 20050519
  3. AMOXIL [Concomitant]
     Indication: DRUG USE FOR UNKNOWN INDICATION
     Dates: start: 20050509, end: 20050519

REACTIONS (2)
  - HEPATIC FAILURE [None]
  - HEPATITIS [None]
